FAERS Safety Report 23599453 (Version 2)
Quarter: 2024Q2

REPORT INFORMATION
  Report Type: Spontaneous
  Country: JP (occurrence: JP)
  Receive Date: 20240306
  Receipt Date: 20240531
  Transmission Date: 20240716
  Serious: Yes (Death)
  Sender: FDA-Public Use
  Company Number: JP-RECORDATI RARE DISEASE INC.-2024001498

PATIENT

DRUGS (6)
  1. CARBAGLU [Suspect]
     Active Substance: CARGLUMIC ACID
     Indication: Methylmalonic acidaemia
     Dosage: 800 MG, DAILY/BID
     Route: 048
     Dates: start: 20210701
  2. LEVOCARNITINE [Concomitant]
     Active Substance: LEVOCARNITINE
     Indication: Methylmalonic acidaemia
     Dosage: 6000MG TABLETS
     Route: 048
     Dates: end: 20211103
  3. LEVOCARNITINE [Concomitant]
     Active Substance: LEVOCARNITINE
     Dosage: 7500 MG  TABLETS
     Route: 048
     Dates: start: 20211104, end: 20220301
  4. LEVOCARNITINE [Concomitant]
     Active Substance: LEVOCARNITINE
     Dosage: 9000 MG  TABLETS
     Route: 048
     Dates: start: 20220302
  5. LACTULOSE [Concomitant]
     Active Substance: LACTULOSE
     Indication: Methylmalonic acidaemia
     Dosage: 1 PACK
     Route: 048
     Dates: end: 20220301
  6. LACTULOSE [Concomitant]
     Active Substance: LACTULOSE
     Dosage: 2 PACK
     Route: 048
     Dates: start: 20220302

REACTIONS (2)
  - Death [Fatal]
  - Hyperammonaemia [Recovering/Resolving]

NARRATIVE: CASE EVENT DATE: 20220601
